FAERS Safety Report 17740781 (Version 2)
Quarter: 2020Q2

REPORT INFORMATION
  Report Type: Spontaneous
  Country: US (occurrence: US)
  Receive Date: 20200504
  Receipt Date: 20200526
  Transmission Date: 20200714
  Serious: No
  Sender: FDA-Public Use
  Company Number: US-VERTEX PHARMACEUTICALS-2020-007697

PATIENT
  Age: 12 Year
  Sex: Male
  Weight: 36 kg

DRUGS (7)
  1. ZENPEP [Concomitant]
     Active Substance: PANCRELIPASE AMYLASE\PANCRELIPASE LIPASE\PANCRELIPASE PROTEASE
  2. HYPERSAL [Concomitant]
     Active Substance: SODIUM CHLORIDE
  3. ACTIGALL [Concomitant]
     Active Substance: URSODIOL
  4. PULMOZYME [Concomitant]
     Active Substance: DORNASE ALFA
  5. PROZAC [Concomitant]
     Active Substance: FLUOXETINE HYDROCHLORIDE
  6. XOPENEX [Concomitant]
     Active Substance: LEVALBUTEROL HYDROCHLORIDE
  7. TRIKAFTA [Suspect]
     Active Substance: ELEXACAFTOR\IVACAFTOR\TEZACAFTOR
     Indication: CYSTIC FIBROSIS
     Dosage: 2 TAB(100 MG ELEXACAFTOR/ 50 MG TEZACAFTOR/ 75 MG IVACAFTOR) IN AM; 1 TAB(150MG IVACAFTOR) IN PM
     Route: 048
     Dates: start: 20191217

REACTIONS (5)
  - Gastroenteritis viral [Unknown]
  - Headache [Recovered/Resolved]
  - Staphylococcus test positive [Unknown]
  - Abdominal pain upper [Recovered/Resolved]
  - Tremor [Recovered/Resolved]

NARRATIVE: CASE EVENT DATE: 201912
